FAERS Safety Report 7138370-6 (Version None)
Quarter: 2010Q4

REPORT INFORMATION
  Report Type: 
  Country: None (occurrence: None)
  Receive Date: 20101206
  Receipt Date: 20101124
  Transmission Date: 20110411
  Serious: Yes (Death)
  Sender: FDA-Public Use
  Company Number: US-ROCHE-746040

PATIENT
  Age: 61 Year
  Sex: Female

DRUGS (9)
  1. BEVACIZUMAB [Suspect]
     Dosage: FREQUENCY:DAY 1 EVERY 21 DAYS. DATE OF LAST DOSE PRIOR TO SAE:16 MARCH 2009
     Route: 042
     Dates: start: 20081110
  2. TOPOTECAN [Suspect]
     Dosage: FREQUENCY:DAYS 1-5 FOR 5 CONSECUTIVE DAYS.
     Route: 048
     Dates: start: 20081110
  3. VALSARTAN [Concomitant]
  4. CELECOXIB [Concomitant]
  5. GABAPENTIN [Concomitant]
  6. MAGNESIUM OXIDE [Concomitant]
  7. CALCIUM/VITAMIN D3 [Concomitant]
  8. ASPIRIN [Concomitant]
  9. ALENDRONATE SODIUM [Concomitant]

REACTIONS (2)
  - PNEUMONIA [None]
  - RESPIRATORY FAILURE [None]
